FAERS Safety Report 10971964 (Version 3)
Quarter: 2015Q3

REPORT INFORMATION
  Report Type: Report from Study
  Country: US (occurrence: US)
  Receive Date: 20150331
  Receipt Date: 20150805
  Transmission Date: 20151125
  Serious: No
  Sender: FDA-Public Use
  Company Number: US-ACTELION-A-NJ2015-115206

PATIENT
  Age: 44 Year
  Sex: Female

DRUGS (2)
  1. MACITENTAN [Suspect]
     Active Substance: MACITENTAN
     Indication: PULMONARY HYPERTENSION
     Dosage: 10 MG, QD
     Route: 048
  2. ADCIRCA [Concomitant]
     Active Substance: TADALAFIL

REACTIONS (4)
  - Pregnancy test false positive [Unknown]
  - Mass [Unknown]
  - Protein urine [Unknown]
  - Human chorionic gonadotropin positive [Unknown]

NARRATIVE: CASE EVENT DATE: 201503
